FAERS Safety Report 9704626 (Version 1)
Quarter: 2013Q4

REPORT INFORMATION
  Report Type: Report from Study
  Country: US (occurrence: US)
  Receive Date: 20131122
  Receipt Date: 20131122
  Transmission Date: 20140711
  Serious: Yes (Hospitalization)
  Sender: FDA-Public Use
  Company Number: US-DRAFT-US-2013-12160

PATIENT
  Age: 61 Year
  Sex: 0
  Weight: 76 kg

DRUGS (10)
  1. BUSULFEX [Suspect]
     Indication: CHRONIC MYELOID LEUKAEMIA
     Dosage: 333 MG MILLIGRAM(S), DAILY DOSE
     Route: 042
     Dates: start: 20050520, end: 20050523
  2. FLUDARABINE [Suspect]
     Indication: CHRONIC MYELOID LEUKAEMIA
     Dosage: 48 MG MILLIGRAM(S), DAILY DOSE
     Route: 042
     Dates: start: 20050519, end: 20050523
  3. ALEMTUZUMAB [Suspect]
     Indication: CHRONIC MYELOID LEUKAEMIA
     Dosage: UNK
  4. CLONAZEPAM [Suspect]
     Indication: CONVULSION PROPHYLAXIS
     Dosage: UNK
     Route: 048
  5. PROGRAF [Concomitant]
     Dosage: 1 MG MILLIGRAM(S), DAILY DOSE
  6. PREVACID [Concomitant]
     Dosage: 30 MG MILLIGRAM(S), DAILY DOSE
  7. HYDROCHLOROTHIAZIDE [Concomitant]
     Dosage: 25 MG MILLIGRAM(S), UNK
  8. VORICONAZOLE [Concomitant]
     Dosage: 200 MG MILLIGRAM(S), BID
  9. BACTRIM [Concomitant]
     Dosage: 1 DF DOSAGE FORM, SATURDAY AND SUNDAY
  10. VALTREX [Concomitant]
     Dosage: 1 G GRAM(S), UNK

REACTIONS (2)
  - Renal failure acute [Unknown]
  - Liver function test abnormal [Unknown]
